FAERS Safety Report 14839949 (Version 2)
Quarter: 2018Q2

REPORT INFORMATION
  Report Type: Spontaneous
  Country: US (occurrence: US)
  Receive Date: 20180503
  Receipt Date: 20180629
  Transmission Date: 20180711
  Serious: No
  Sender: FDA-Public Use
  Company Number: US-B.I. PHARMACEUTICALS,INC./RIDGEFIELD-2018-BI-022910

PATIENT
  Age: 72 Year
  Sex: Female

DRUGS (5)
  1. FOSAMAX [Suspect]
     Active Substance: ALENDRONATE SODIUM
     Indication: PRODUCT USED FOR UNKNOWN INDICATION
     Route: 065
  2. ZOLOFT [Concomitant]
     Active Substance: SERTRALINE HYDROCHLORIDE
     Indication: ANXIETY
     Route: 048
  3. OFEV [Suspect]
     Active Substance: NINTEDANIB
     Dosage: ADMINISTRATION CORRECT? YES ?ACTION(S) TAKEN WITH PRODUCT: DRUG WITHDRAWN
     Route: 048
     Dates: start: 20180216, end: 20180413
  4. OFEV [Suspect]
     Active Substance: NINTEDANIB
     Indication: IDIOPATHIC PULMONARY FIBROSIS
     Route: 048
     Dates: start: 201710, end: 201802
  5. PRIMIDONE. [Concomitant]
     Active Substance: PRIMIDONE
     Indication: TREMOR
     Route: 048

REACTIONS (5)
  - Diarrhoea [Recovered/Resolved]
  - Hepatic enzyme increased [Unknown]
  - Osteoporosis [Not Recovered/Not Resolved]
  - Nausea [Recovered/Resolved]
  - Liver function test increased [Recovered/Resolved]

NARRATIVE: CASE EVENT DATE: 201802
